FAERS Safety Report 4383157-0 (Version None)
Quarter: 2004Q2

REPORT INFORMATION
  Report Type: 
  Country: None (occurrence: None)
  Receive Date: 20040617
  Receipt Date: 20040607
  Transmission Date: 20050107
  Serious: Yes (Other)
  Sender: FDA-Public Use
  Company Number: 2004037986

PATIENT
  Age: 46 Year
  Sex: Female
  Weight: 72.5755 kg

DRUGS (5)
  1. NEURONTIN [Suspect]
     Indication: BACK PAIN
     Dosage: 900 MG (300 MG, 3 IN 1 D) ORAL
     Route: 048
     Dates: start: 20040310, end: 20040604
  2. ATENOLOL [Concomitant]
  3. ESOMEPRAZOLE (ESOMEPRAZOLE) [Concomitant]
  4. VICODIN [Concomitant]
  5. VENLAFAXINE HCL [Concomitant]

REACTIONS (7)
  - AMNESIA [None]
  - CONCUSSION [None]
  - CONDITION AGGRAVATED [None]
  - FALL [None]
  - NECK MASS [None]
  - PAIN EXACERBATED [None]
  - URINARY INCONTINENCE [None]
